FAERS Safety Report 7933080-7 (Version None)
Quarter: 2011Q4

REPORT INFORMATION
  Report Type: 
  Country: None (occurrence: None)
  Receive Date: 20111121
  Receipt Date: 20111121
  Transmission Date: 20120403
  Serious: Yes (Other)
  Sender: FDA-Public Use
  Company Number: None

PATIENT
  Age: 55 Year
  Sex: Female
  Weight: 54 kg

DRUGS (2)
  1. PREMARIN [Concomitant]
  2. RETINOL [Suspect]
     Indication: SKIN WRINKLING
     Dosage: DIME SIZE TOPICALLY ONCE
     Route: 061
     Dates: start: 20111020, end: 20111020

REACTIONS (7)
  - EYE DISORDER [None]
  - ERYTHEMA [None]
  - SKIN DISORDER [None]
  - PHARYNGEAL OEDEMA [None]
  - SKIN EXFOLIATION [None]
  - PRURITUS [None]
  - SWELLING FACE [None]
